FAERS Safety Report 9261706 (Version 4)
Quarter: 2013Q3

REPORT INFORMATION
  Report Type: Spontaneous
  Country: US (occurrence: US)
  Receive Date: 20130429
  Receipt Date: 20130815
  Transmission Date: 20140515
  Serious: Yes (Death, Other)
  Sender: FDA-Public Use
  Company Number: US-GILEAD-2013-0074091

PATIENT
  Sex: Male

DRUGS (2)
  1. CAYSTON [Suspect]
     Indication: INFECTIVE PULMONARY EXACERBATION OF CYSTIC FIBROSIS
     Dosage: 75 MG, UNK
     Route: 055
     Dates: start: 20100326, end: 201009
  2. CAYSTON [Suspect]
     Indication: BRONCHOPNEUMONIA

REACTIONS (2)
  - Haemoptysis [Fatal]
  - Infective pulmonary exacerbation of cystic fibrosis [Unknown]
